FAERS Safety Report 5988926-9 (Version None)
Quarter: 2008Q4

REPORT INFORMATION
  Report Type: 
  Country: None (occurrence: None)
  Receive Date: 20081210
  Receipt Date: 20080320
  Transmission Date: 20090506
  Serious: Yes (Hospitalization)
  Sender: FDA-Public Use
  Company Number: US-AMGEN-STX269172

PATIENT
  Sex: Male

DRUGS (3)
  1. ENBREL [Suspect]
     Indication: PSORIASIS
     Route: 058
  2. PREDNISONE TAB [Concomitant]
     Route: 065
  3. UNSPECIFIED ANTIHYPERTENSIVE AGENT [Concomitant]
     Route: 065

REACTIONS (1)
  - CELLULITIS [None]
